FAERS Safety Report 20756376 (Version 3)
Quarter: 2022Q3

REPORT INFORMATION
  Report Type: Report from Study
  Country: CO (occurrence: CO)
  Receive Date: 20220427
  Receipt Date: 20220713
  Transmission Date: 20221026
  Serious: Yes (Other)
  Sender: FDA-Public Use
  Company Number: CO-NOVARTISPH-NVSC2022CO050242

PATIENT
  Age: 59 Year
  Sex: Female

DRUGS (2)
  1. TASIGNA [Suspect]
     Active Substance: NILOTINIB
     Indication: Chronic myeloid leukaemia
     Dosage: 400 MG, Q12H
     Route: 048
     Dates: start: 2012, end: 202112
  2. TASIGNA [Suspect]
     Active Substance: NILOTINIB
     Dosage: 400 MG, Q12H
     Route: 048

REACTIONS (18)
  - Nephrolithiasis [Unknown]
  - Intervertebral disc disorder [Unknown]
  - Renal vein occlusion [Unknown]
  - Abdominal pain upper [Unknown]
  - Cytogenetic analysis abnormal [Unknown]
  - Ill-defined disorder [Unknown]
  - Toothache [Recovered/Resolved]
  - Inflammation [Unknown]
  - Eructation [Unknown]
  - Illness [Unknown]
  - Abdominal discomfort [Unknown]
  - Depression [Unknown]
  - Constipation [Unknown]
  - Pain [Unknown]
  - Gastrooesophageal reflux disease [Unknown]
  - Flatulence [Unknown]
  - Vomiting [Unknown]
  - Myalgia [Unknown]

NARRATIVE: CASE EVENT DATE: 20211201
